FAERS Safety Report 17699827 (Version 4)
Quarter: 2020Q4

REPORT INFORMATION
  Report Type: Spontaneous
  Country: US (occurrence: US)
  Receive Date: 20200423
  Receipt Date: 20201001
  Transmission Date: 20210113
  Serious: Yes (Death, Hospitalization)
  Sender: FDA-Public Use
  Company Number: US-LEXICON PHARMACEUTICALS, INC-20-1606-00298

PATIENT
  Age: 65 Year
  Sex: Male

DRUGS (3)
  1. XERMELO [Suspect]
     Active Substance: TELOTRISTAT ETHYL
     Indication: CARCINOID TUMOUR OF THE SMALL BOWEL
     Dosage: 1 AND 1/2 TBL PER DAY
  2. TPN [Concomitant]
     Active Substance: AMINO ACIDS\DEXTROSE\ELECTROLYTES NOS\SOYBEAN OIL
  3. XERMELO [Suspect]
     Active Substance: TELOTRISTAT ETHYL
     Indication: CARCINOID SYNDROME
     Dates: start: 20200306

REACTIONS (5)
  - Off label use [Not Recovered/Not Resolved]
  - Feeding disorder [Not Recovered/Not Resolved]
  - Death [Fatal]
  - Biliary tract disorder [Not Recovered/Not Resolved]
  - Hospitalisation [Not Recovered/Not Resolved]
